FAERS Safety Report 6641631-8 (Version None)
Quarter: 2010Q1

REPORT INFORMATION
  Report Type: 
  Country: None (occurrence: None)
  Receive Date: 20100317
  Receipt Date: 20100317
  Transmission Date: 20100710
  Serious: Yes (Hospitalization)
  Sender: FDA-Public Use
  Company Number: None

PATIENT
  Age: 55 Year
  Sex: Female
  Weight: 59.1 kg

DRUGS (2)
  1. FOSAMAX [Suspect]
     Indication: OSTEOPENIA
     Dosage: 70 MG MPNTHLY BY MOUTH
     Route: 048
     Dates: start: 20021122
  2. FOSAMAX [Suspect]
     Indication: OSTEOPENIA
     Dosage: 70 MG MPNTHLY BY MOUTH
     Route: 048
     Dates: start: 20070630

REACTIONS (2)
  - ANKLE FRACTURE [None]
  - OPEN FRACTURE [None]
